FAERS Safety Report 5820144-7 (Version None)
Quarter: 2008Q3

REPORT INFORMATION
  Report Type: 
  Country: None (occurrence: None)
  Receive Date: 20080724
  Receipt Date: 20080713
  Transmission Date: 20090109
  Serious: Yes (Other)
  Sender: FDA-Public Use
  Company Number: PHHY2008MX14552

PATIENT
  Sex: Female

DRUGS (1)
  1. ZOLEDRONIC ACID [Suspect]
     Indication: OSTEOPOROSIS
     Dosage: 1 AMP ANNUAL

REACTIONS (4)
  - ARTHRALGIA [None]
  - COLITIS [None]
  - HEADACHE [None]
  - PYREXIA [None]
